FAERS Safety Report 20920697 (Version 1)
Quarter: 2022Q2

REPORT INFORMATION
  Report Type: Spontaneous
  Country: BR (occurrence: BR)
  Receive Date: 20220606
  Receipt Date: 20220606
  Transmission Date: 20220721
  Serious: Yes (Other)
  Sender: FDA-Public Use
  Company Number: BR-ORGANON-O2205BRA002476

PATIENT
  Sex: Female
  Weight: 79 kg

DRUGS (1)
  1. ETONOGESTREL [Suspect]
     Active Substance: ETONOGESTREL
     Dosage: 1 IMPLANT, 3 YEARS
     Route: 059
     Dates: start: 2019

REACTIONS (8)
  - Self esteem decreased [Unknown]
  - Heavy menstrual bleeding [Unknown]
  - Weight increased [Unknown]
  - Irritability [Unknown]
  - Muscle spasms [Unknown]
  - Abdominal discomfort [Unknown]
  - Acne [Unknown]
  - Alopecia [Unknown]
